FAERS Safety Report 14444496 (Version 3)
Quarter: 2018Q1

REPORT INFORMATION
  Report Type: Report from Study
  Country: None (occurrence: TW)
  Receive Date: 20180126
  Receipt Date: 20180228
  Transmission Date: 20180509
  Serious: Yes (Hospitalization)
  Sender: FDA-Public Use
  Company Number: TW-ABBVIE-18K-153-2230575-00

PATIENT
  Age: 51 Year
  Sex: Male
  Weight: 77 kg

DRUGS (2)
  1. HUMIRA [Suspect]
     Active Substance: ADALIMUMAB
     Route: 058
     Dates: start: 20180221
  2. HUMIRA [Suspect]
     Active Substance: ADALIMUMAB
     Indication: PSORIATIC ARTHROPATHY
     Route: 058
     Dates: start: 20101021, end: 20171213

REACTIONS (4)
  - Atrial fibrillation [Recovering/Resolving]
  - Blood potassium decreased [Not Recovered/Not Resolved]
  - Hypertension [Recovering/Resolving]
  - Thalamic infarction [Recovering/Resolving]

NARRATIVE: CASE EVENT DATE: 201712
